FAERS Safety Report 7551413-0 (Version None)
Quarter: 2011Q2

REPORT INFORMATION
  Report Type: 
  Country: None (occurrence: None)
  Receive Date: 20110616
  Receipt Date: 20110609
  Transmission Date: 20111010
  Serious: Yes (Other)
  Sender: FDA-Public Use
  Company Number: PL-ROCHE-775341

PATIENT
  Sex: Male
  Weight: 88 kg

DRUGS (3)
  1. INVIRASE [Suspect]
     Indication: HIV INFECTION
     Route: 048
     Dates: start: 20070708, end: 20101228
  2. LAMIVUDINE [Concomitant]
     Indication: HIV INFECTION
     Dosage: DOSE: 300. FREQUENCY:1X
     Route: 048
  3. TENOFOVIR DISOPROXIL FUMARATE [Concomitant]
     Indication: HIV INFECTION
     Dosage: FREQUENCY:1X
     Dates: start: 20081202

REACTIONS (2)
  - NOCTURIA [None]
  - POLYURIA [None]
